FAERS Safety Report 15581682 (Version 1)
Quarter: 2018Q4

REPORT INFORMATION
  Report Type: Spontaneous
  Country: US (occurrence: US)
  Receive Date: 20181102
  Receipt Date: 20181102
  Transmission Date: 20190205
  Serious: No
  Sender: FDA-Public Use
  Company Number: US-RADIUS HEALTH INC.-2018US002630

PATIENT
  Sex: Female

DRUGS (3)
  1. TYMLOS [Suspect]
     Active Substance: ABALOPARATIDE
     Dosage: 80 MCG
     Route: 058
     Dates: start: 20180926
  2. TYMLOS [Suspect]
     Active Substance: ABALOPARATIDE
     Dosage: 80 MCG TWICE A WEEK
     Route: 058
  3. TYMLOS [Suspect]
     Active Substance: ABALOPARATIDE
     Indication: OSTEOPOROSIS POSTMENOPAUSAL
     Dosage: 80 MCG, UNK
     Route: 065
     Dates: start: 201806, end: 20180913

REACTIONS (9)
  - Off label use [Unknown]
  - Urinary tract infection [Unknown]
  - Palpitations [Unknown]
  - Product dose omission [Unknown]
  - Pruritus [Unknown]
  - Wrong technique in product usage process [Unknown]
  - Rash [Unknown]
  - Micturition urgency [Unknown]
  - Fatigue [Unknown]

NARRATIVE: CASE EVENT DATE: 201810
